FAERS Safety Report 5242868-5 (Version None)
Quarter: 2007Q1

REPORT INFORMATION
  Report Type: 
  Country: None (occurrence: None)
  Receive Date: 20070214
  Receipt Date: 20070202
  Transmission Date: 20070707
  Serious: Yes (Hospitalization)
  Sender: FDA-Public Use
  Company Number: 163-20785-07020112

PATIENT
  Age: 74 Year
  Sex: Male

DRUGS (7)
  1. THALOMID [Suspect]
     Indication: MULTIPLE MYELOMA
     Dosage: 50 MG, 1 IN 1 D, ORAL
     Route: 048
     Dates: start: 20060401, end: 20070101
  2. TIKOSYN [Concomitant]
  3. DIGOXIN [Concomitant]
  4. LOTREL [Concomitant]
  5. ZOMETA [Concomitant]
  6. LASIX [Concomitant]
  7. POTASSIUM (POTASSIUM) [Concomitant]

REACTIONS (8)
  - CARDIAC DISORDER [None]
  - HYPOAESTHESIA [None]
  - NEUROPATHY PERIPHERAL [None]
  - OEDEMA PERIPHERAL [None]
  - PNEUMONIA [None]
  - PRURITUS [None]
  - PULMONARY OEDEMA [None]
  - WEIGHT DECREASED [None]
